FAERS Safety Report 7774774-6 (Version None)
Quarter: 2011Q3

REPORT INFORMATION
  Report Type: 
  Country: None (occurrence: None)
  Receive Date: 20110923
  Receipt Date: 20110915
  Transmission Date: 20111222
  Serious: Yes (Hospitalization)
  Sender: FDA-Public Use
  Company Number: JP-ROCHE-803868

PATIENT
  Sex: Female

DRUGS (12)
  1. INFREE [Concomitant]
     Dosage: DRUG: INFREE(INDOMETACIN FARNESIL)
     Route: 048
     Dates: end: 20101019
  2. RISEDRONATE SODIUM [Concomitant]
     Dosage: DRUG: BENET(SODIUM RISDRONATE HYDRATE)
     Route: 048
     Dates: end: 20090122
  3. VOLTAREN [Concomitant]
     Dosage: DRUG: VOLTAREN(DICLOFENAC SODIUM)
     Route: 054
     Dates: start: 20081024
  4. CYTOTEC [Concomitant]
     Route: 048
  5. GASLON N [Concomitant]
     Dosage: GASLON N (IRSOGLADINE MALEATE)
     Route: 048
     Dates: start: 20081219
  6. IPD [Concomitant]
     Route: 048
  7. LIPITOR [Concomitant]
     Dosage: DRUG: LIPITOR(ATORVASTATIN CALCIUM HYDRATE)
     Route: 048
  8. ISONIAZID [Concomitant]
     Route: 048
     Dates: start: 20090810
  9. TOCILIZUMAB [Suspect]
     Indication: RHEUMATOID ARTHRITIS
     Route: 041
     Dates: start: 20081120, end: 20090520
  10. ALENDRONATE SODIUM [Concomitant]
     Route: 048
     Dates: start: 20090123
  11. LANSOPRAZOLE [Concomitant]
     Route: 048
  12. MEDROL [Concomitant]
     Route: 048

REACTIONS (2)
  - SPINAL COMPRESSION FRACTURE [None]
  - INTERSTITIAL LUNG DISEASE [None]
